FAERS Safety Report 15608661 (Version 2)
Quarter: 2018Q4

REPORT INFORMATION
  Report Type: Spontaneous
  Country: US (occurrence: US)
  Receive Date: 20181112
  Receipt Date: 20181116
  Transmission Date: 20190205
  Serious: No
  Sender: FDA-Public Use
  Company Number: GB-SA-2018SA300318

PATIENT
  Sex: Female

DRUGS (4)
  1. PRALUENT [Suspect]
     Active Substance: ALIROCUMAB
     Indication: LOW DENSITY LIPOPROTEIN DECREASED
     Dosage: 150 MG, QOW
     Route: 058
     Dates: start: 20180901
  2. REPATHA [Concomitant]
     Active Substance: EVOLOCUMAB
  3. PROLIA [Concomitant]
     Active Substance: DENOSUMAB
  4. GAMMAGARD [Concomitant]
     Active Substance: HUMAN IMMUNOGLOBULIN G
     Route: 042

REACTIONS (1)
  - Injection site pain [Unknown]

NARRATIVE: CASE EVENT DATE: 20180901
